FAERS Safety Report 5284926-5 (Version None)
Quarter: 2007Q1

REPORT INFORMATION
  Report Type: 
  Country: None (occurrence: None)
  Receive Date: 20061229
  Receipt Date: 20061024
  Transmission Date: 20070707
  Serious: Yes (Hospitalization)
  Sender: FDA-Public Use
  Company Number: PHEH2006US13272

PATIENT
  Sex: Male

DRUGS (1)
  1. CLOZARIL [Suspect]
     Dates: start: 20061017

REACTIONS (1)
  - WHITE BLOOD CELL COUNT INCREASED [None]
